FAERS Safety Report 16995441 (Version 7)
Quarter: 2023Q2

REPORT INFORMATION
  Report Type: Spontaneous
  Country: US (occurrence: US)
  Receive Date: 20191105
  Receipt Date: 20230629
  Transmission Date: 20230721
  Serious: No
  Sender: FDA-Public Use
  Company Number: US-PFIZER INC-2019474709

PATIENT
  Age: 69 Year
  Sex: Female
  Weight: 88 kg

DRUGS (2)
  1. IBRANCE [Suspect]
     Active Substance: PALBOCICLIB
     Indication: Breast cancer metastatic
     Dosage: 125 MG, CYCLIC FOR 21 DAYS THEN OFF 7DAYS)
     Dates: start: 201707
  2. LETROZOLE [Concomitant]
     Active Substance: LETROZOLE
     Dosage: UNK
     Dates: start: 201707

REACTIONS (6)
  - Alopecia [Not Recovered/Not Resolved]
  - Cough [Unknown]
  - Dyspnoea [Unknown]
  - Intervertebral disc protrusion [Unknown]
  - Intervertebral disc compression [Unknown]
  - Immune system disorder [Unknown]
